FAERS Safety Report 10771202 (Version 1)
Quarter: 2015Q1

REPORT INFORMATION
  Report Type: Spontaneous
  Country: IT (occurrence: IT)
  Receive Date: 20150206
  Receipt Date: 20150206
  Transmission Date: 20150721
  Serious: Yes (Hospitalization)
  Sender: FDA-Public Use
  Company Number: PHHY2015IT014317

PATIENT
  Age: 64 Year
  Sex: Male

DRUGS (2)
  1. DICLOFENAC [Suspect]
     Active Substance: DICLOFENAC
     Indication: INJURY
     Dosage: 75 MG, PRN (AS NEEDED)
     Route: 048
     Dates: start: 20141220, end: 20150120
  2. AULIN [Suspect]
     Active Substance: NIMESULIDE
     Indication: INJURY
     Dosage: 100 MG, PRN (AS NEEDED)
     Route: 048
     Dates: start: 20150120, end: 20150120

REACTIONS (3)
  - Acute myocardial infarction [Recovering/Resolving]
  - Electrocardiogram ST segment elevation [Recovering/Resolving]
  - Cardiac failure [Recovering/Resolving]

NARRATIVE: CASE EVENT DATE: 20150120
